FAERS Safety Report 8045833-8 (Version None)
Quarter: 2012Q1

REPORT INFORMATION
  Report Type: 
  Country: None (occurrence: None)
  Receive Date: 20120113
  Receipt Date: 20120105
  Transmission Date: 20120608
  Serious: Yes (Hospitalization)
  Sender: FDA-Public Use
  Company Number: CA-JNJFOC-20111208252

PATIENT
  Sex: Male
  Weight: 50.8 kg

DRUGS (2)
  1. INFLIXIMAB [Suspect]
     Indication: PSORIASIS
     Route: 042
     Dates: start: 20110601
  2. STELARA [Suspect]
     Indication: PSORIASIS
     Route: 058
     Dates: start: 20100401, end: 20101113

REACTIONS (3)
  - LOCALISED OEDEMA [None]
  - NEPHROLITHIASIS [None]
  - URETHRAL DISORDER [None]
